FAERS Safety Report 5699351-2 (Version None)
Quarter: 2008Q2

REPORT INFORMATION
  Report Type: 
  Country: None (occurrence: None)
  Receive Date: 20080404
  Receipt Date: 20080328
  Transmission Date: 20081010
  Serious: Yes (Hospitalization)
  Sender: FDA-Public Use
  Company Number: 2008-0213

PATIENT
  Sex: Female

DRUGS (5)
  1. ALLERX DOSE PACK [Suspect]
     Indication: RHINITIS SEASONAL
     Dosage: BID, PO
     Route: 048
  2. SINGULAIR [Concomitant]
  3. AMBIENT [Concomitant]
  4. ULTRACET [Concomitant]
  5. SEASONALE [Concomitant]

REACTIONS (3)
  - CONVULSION [None]
  - INSOMNIA [None]
  - MIGRAINE [None]
